FAERS Safety Report 17913794 (Version 2)
Quarter: 2020Q3

REPORT INFORMATION
  Report Type: Spontaneous
  Country: US (occurrence: US)
  Receive Date: 20200618
  Receipt Date: 20200715
  Transmission Date: 20201103
  Serious: Yes (Hospitalization)
  Sender: FDA-Public Use
  Company Number: US-ACTELION-A-NJ2020-206261

PATIENT
  Age: 61 Year
  Sex: Female

DRUGS (1)
  1. VELETRI [Suspect]
     Active Substance: EPOPROSTENOL
     Indication: PULMONARY HYPERTENSION
     Dosage: 44.5 NG/KG, PER MIN
     Route: 042

REACTIONS (2)
  - Device leakage [Recovered/Resolved]
  - Catheter management [Unknown]

NARRATIVE: CASE EVENT DATE: 20200608
